FAERS Safety Report 9190649 (Version 1)
Quarter: 2013Q1

REPORT INFORMATION
  Report Type: Spontaneous
  Country: US (occurrence: None)
  Receive Date: 20120703
  Receipt Date: 20120703
  Transmission Date: 20140127
  Serious: Yes (Other)
  Sender: FDA-Public Use
  Company Number: PHEH2012US007719

PATIENT
  Age: 43 Year
  Sex: Female
  Weight: 70.3 kg

DRUGS (1)
  1. GILENYA (FTY)CAPSULE, 0.5MG [Suspect]
     Route: 048
     Dates: start: 20120409

REACTIONS (9)
  - Dizziness [None]
  - Fatigue [None]
  - Nausea [None]
  - Chest pain [None]
  - Headache [None]
  - Heart rate irregular [None]
  - Electrocardiogram abnormal [None]
  - Polyuria [None]
  - Heart rate decreased [None]
